FAERS Safety Report 5508474-X (Version None)
Quarter: 2007Q4

REPORT INFORMATION
  Report Type: 
  Country: None (occurrence: None)
  Receive Date: 20071107
  Receipt Date: 20071030
  Transmission Date: 20080405
  Serious: Yes (Hospitalization, Other)
  Sender: FDA-Public Use
  Company Number: PHHO2007HK13961

PATIENT
  Age: 46 Year
  Sex: Male
  Weight: 54 kg

DRUGS (2)
  1. TELBIVUDINE (LDT) [Suspect]
     Indication: HEPATITIS B
     Dosage: 600 MG,
     Route: 048
     Dates: start: 20051216, end: 20070905
  2. METOPROLOL TARTRATE [Concomitant]
     Indication: HYPERTENSION

REACTIONS (7)
  - ASTHENIA [None]
  - BLOOD CREATINE PHOSPHOKINASE INCREASED [None]
  - BLOOD LACTATE DEHYDROGENASE INCREASED [None]
  - HYPERREFLEXIA [None]
  - MUSCLE ATROPHY [None]
  - POLYMYOSITIS [None]
  - WEIGHT DECREASED [None]
